FAERS Safety Report 10110134 (Version 2)
Quarter: 2014Q2

REPORT INFORMATION
  Report Type: Spontaneous
  Country: JP (occurrence: JP)
  Receive Date: 20140425
  Receipt Date: 20140620
  Transmission Date: 20141212
  Serious: Yes (Death)
  Sender: FDA-Public Use
  Company Number: PHHY2014JP049427

PATIENT
  Sex: 0

DRUGS (2)
  1. DESFERAL INF. [Suspect]
     Indication: HAEMOCHROMATOSIS
     Dosage: 500 MG, DAILY
     Route: 030
     Dates: start: 20140411, end: 20140413
  2. METHOTREXATE [Concomitant]
     Indication: RHEUMATIC DISORDER
     Dosage: UKN

REACTIONS (1)
  - Pseudomonas infection [Fatal]
